FAERS Safety Report 9320078 (Version 1)
Quarter: 2013Q2

REPORT INFORMATION
  Report Type: Spontaneous
  Country: US (occurrence: US)
  Receive Date: 20130530
  Receipt Date: 20130530
  Transmission Date: 20140414
  Serious: No
  Sender: FDA-Public Use
  Company Number: US-PFIZER INC-2013163311

PATIENT
  Age: 55 Year
  Sex: Male

DRUGS (3)
  1. ACCUPRIL [Suspect]
     Dosage: UNK
  2. HYDROCHLOROTHIAZIDE [Suspect]
     Dosage: UNK
  3. PENICILLIN [Suspect]

REACTIONS (1)
  - Drug hypersensitivity [Unknown]
